FAERS Safety Report 13850242 (Version 1)
Quarter: 2017Q3

REPORT INFORMATION
  Report Type: Spontaneous
  Country: US (occurrence: US)
  Receive Date: 20170809
  Receipt Date: 20170809
  Transmission Date: 20171127
  Serious: No
  Sender: FDA-Public Use
  Company Number: US-MYLANLABS-2016M1050216

PATIENT
  Sex: Female

DRUGS (1)
  1. NORETHISTERONE [Suspect]
     Active Substance: NORETHINDRONE
     Indication: METRORRHAGIA
     Dosage: UNK

REACTIONS (1)
  - Metrorrhagia [Unknown]

NARRATIVE: CASE EVENT DATE: 201611
